FAERS Safety Report 23342730 (Version 1)
Quarter: 2023Q4

REPORT INFORMATION
  Report Type: Spontaneous
  Country: SK (occurrence: SK)
  Receive Date: 20231227
  Receipt Date: 20231227
  Transmission Date: 20240110
  Serious: Yes (Hospitalization, Other)
  Sender: FDA-Public Use
  Company Number: SK-PFIZER INC-PV202300204574

PATIENT
  Age: 2 Year
  Sex: Male

DRUGS (2)
  1. SOLU-MEDROL [Suspect]
     Active Substance: METHYLPREDNISOLONE SODIUM SUCCINATE
     Indication: Oropharyngeal oedema
     Dosage: UNK
  2. PENICILLIN G [Concomitant]
     Active Substance: PENICILLIN G
     Dosage: UNK

REACTIONS (2)
  - Drug ineffective [Unknown]
  - Adenotonsillectomy [Unknown]
